FAERS Safety Report 4333017-6 (Version None)
Quarter: 2004Q2

REPORT INFORMATION
  Report Type: 
  Country: None (occurrence: None)
  Receive Date: 20040405
  Receipt Date: 20040405
  Transmission Date: 20050107
  Serious: Yes (Hospitalization)
  Sender: FDA-Public Use
  Company Number: None

PATIENT
  Age: 77 Year
  Sex: Female
  Weight: 60 kg

DRUGS (1)
  1. VINORELBINE TARTRATE [Suspect]
     Indication: BREAST CANCER
     Dosage: 50 MG IV X 1
     Route: 042
     Dates: start: 20040220

REACTIONS (3)
  - COMA [None]
  - HYPOKALAEMIA [None]
  - HYPONATRAEMIA [None]
